FAERS Safety Report 7421978-8 (Version None)
Quarter: 2011Q2

REPORT INFORMATION
  Report Type: 
  Country: None (occurrence: None)
  Receive Date: 20110418
  Receipt Date: 20110405
  Transmission Date: 20111010
  Serious: Yes (Hospitalization)
  Sender: FDA-Public Use
  Company Number: US-ELI_LILLY_AND_COMPANY-US201010000818

PATIENT
  Age: 78 Year
  Sex: Female

DRUGS (4)
  1. FORTEO [Suspect]
     Dosage: UNK, UNKNOWN
     Route: 065
  2. FORTEO [Suspect]
     Dosage: UNK UNK, UNKNOWN
     Route: 065
  3. FORTEO [Suspect]
     Dosage: UNK, UNKNOWN
  4. FORTEO [Suspect]
     Dosage: UNK, UNKNOWN

REACTIONS (5)
  - HOSPITALISATION [None]
  - LUNG INFECTION [None]
  - FEELING ABNORMAL [None]
  - BLOOD CALCIUM INCREASED [None]
  - BACTERIAL INFECTION [None]
